FAERS Safety Report 12760351 (Version 1)
Quarter: 2016Q3

REPORT INFORMATION
  Report Type: Spontaneous
  Country: ZA (occurrence: ZA)
  Receive Date: 20160919
  Receipt Date: 20160919
  Transmission Date: 20161109
  Serious: Yes (Other)
  Sender: FDA-Public Use
  Company Number: ZA-GE HEALTHCARE MEDICAL DIAGNOSTICS-OMPQ-PR-1609S-1692

PATIENT
  Age: 22 Year
  Sex: Female

DRUGS (3)
  1. OMNIPAQUE [Suspect]
     Active Substance: IOHEXOL
     Indication: ENDOMETRIOSIS
  2. OMNIPAQUE [Suspect]
     Active Substance: IOHEXOL
     Indication: ABDOMINAL PAIN LOWER
     Dosage: DOSE NOT REPORTED
     Route: 042
     Dates: start: 20160906, end: 20160906
  3. OMNIPAQUE [Suspect]
     Active Substance: IOHEXOL
     Indication: DIAGNOSTIC PROCEDURE

REACTIONS (5)
  - Urticaria [Unknown]
  - Heart rate decreased [Unknown]
  - Erythema [Unknown]
  - Eye disorder [Unknown]
  - Chest discomfort [Unknown]

NARRATIVE: CASE EVENT DATE: 20160906
